FAERS Safety Report 7030792-7 (Version None)
Quarter: 2010Q4

REPORT INFORMATION
  Report Type: 
  Country: None (occurrence: None)
  Receive Date: 20101006
  Receipt Date: 20100923
  Transmission Date: 20110411
  Serious: No
  Sender: FDA-Public Use
  Company Number: US-PFIZER INC-2010121910

PATIENT
  Sex: Male
  Weight: 109 kg

DRUGS (6)
  1. GENOTROPIN [Suspect]
     Indication: GROWTH HORMONE DEFICIENCY
     Dosage: 0.6 MG, 1X/DAY
     Dates: start: 20100201
  2. GENOTROPIN [Suspect]
     Indication: PITUITARY TUMOUR BENIGN
     Dosage: 0.8 MG, 1X/DAY
  3. GENOTROPIN [Suspect]
     Dosage: 1.4 MG, 1X/DAY
  4. ANASTROZOLE [Concomitant]
     Dosage: UNK
  5. ANDROGEL [Concomitant]
     Dosage: UNK
  6. DOSTINEX [Concomitant]
     Dosage: UNK

REACTIONS (4)
  - ABNORMAL DREAMS [None]
  - FATIGUE [None]
  - HYPERSOMNIA [None]
  - SOMNOLENCE [None]
